FAERS Safety Report 6086854-4 (Version None)
Quarter: 2009Q1

REPORT INFORMATION
  Report Type: 
  Country: None (occurrence: None)
  Receive Date: 20090217
  Receipt Date: 20080924
  Transmission Date: 20090719
  Serious: Yes (Other)
  Sender: FDA-Public Use
  Company Number: MC200800459

PATIENT
  Sex: Male

DRUGS (3)
  1. ANGIOMAX [Suspect]
     Indication: PERCUTANEOUS CORONARY INTERVENTION
     Dosage: BOLUS, INTRAVENOUS : INTRAVENOUS
     Route: 040
     Dates: start: 20080924, end: 20080924
  2. ANGIOMAX [Suspect]
     Indication: PERCUTANEOUS CORONARY INTERVENTION
     Dosage: BOLUS, INTRAVENOUS : INTRAVENOUS
     Route: 040
     Dates: start: 20080924
  3. HEPARIN [Concomitant]

REACTIONS (2)
  - COAGULATION TIME ABNORMAL [None]
  - THROMBOSIS IN DEVICE [None]
